FAERS Safety Report 10380635 (Version 1)
Quarter: 2014Q3

REPORT INFORMATION
  Report Type: Spontaneous
  Country: DE (occurrence: DE)
  Receive Date: 20140813
  Receipt Date: 20140813
  Transmission Date: 20150326
  Serious: Yes (Other)
  Sender: FDA-Public Use
  Company Number: PHHY2014DE097934

PATIENT
  Age: 50 Year
  Sex: Female

DRUGS (1)
  1. ONBREZ [Suspect]
     Active Substance: INDACATEROL
     Indication: BRONCHIAL HYPERREACTIVITY
     Dosage: UNK UKN, UNK
     Route: 055

REACTIONS (2)
  - Bronchospasm paradoxical [Recovered/Resolved]
  - Condition aggravated [Recovered/Resolved]
